FAERS Safety Report 19140147 (Version 1)
Quarter: 2021Q2

REPORT INFORMATION
  Report Type: Spontaneous
  Country: US (occurrence: US)
  Receive Date: 20210415
  Receipt Date: 20210415
  Transmission Date: 20210717
  Serious: No
  Sender: FDA-Public Use
  Company Number: US-GW PHARMA-202104USGW01552

PATIENT

DRUGS (1)
  1. EPIDIOLEX [Suspect]
     Active Substance: CANNABIDIOL
     Indication: LENNOX-GASTAUT SYNDROME
     Dosage: 500 MILLIGRAM, BID
     Route: 048
     Dates: start: 20200403

REACTIONS (6)
  - Vomiting [Unknown]
  - Seizure [Unknown]
  - Lethargy [Unknown]
  - Stress [Unknown]
  - Impaired quality of life [Unknown]
  - Diarrhoea [Unknown]
